FAERS Safety Report 14530265 (Version 2)
Quarter: 2018Q2

REPORT INFORMATION
  Report Type: Spontaneous
  Country: SE (occurrence: SE)
  Receive Date: 20180214
  Receipt Date: 20180424
  Transmission Date: 20180711
  Serious: Yes (Other)
  Sender: FDA-Public Use
  Company Number: SE-GLAXOSMITHKLINE-SE2018023528

PATIENT
  Age: 24 Year
  Sex: Male

DRUGS (1)
  1. VOLTAREN [Suspect]
     Active Substance: DICLOFENAC SODIUM
     Indication: PAIN
     Dosage: 75 MG, UNK, (INJEKTION VOLTAREN GLUTERALT H?GER, INJEKTIONSV?TSKA, L?SNING)
     Route: 065

REACTIONS (1)
  - Sciatic nerve injury [Recovered/Resolved with Sequelae]

NARRATIVE: CASE EVENT DATE: 20170705
